FAERS Safety Report 5205831-6 (Version None)
Quarter: 2007Q1

REPORT INFORMATION
  Report Type: 
  Country: None (occurrence: None)
  Receive Date: 20070105
  Receipt Date: 20070105
  Transmission Date: 20070707
  Serious: Yes (Life-Threatening, Hospitalization)
  Sender: FDA-Public Use
  Company Number: None

PATIENT
  Age: 79 Year
  Sex: Female
  Weight: 76.9 kg

DRUGS (2)
  1. EPTIFIBATIDE [Suspect]
     Indication: CHEST PAIN
     Dosage: 180MCG/KG, ONCE IV BOLUS
     Route: 040
     Dates: start: 20061225, end: 20061225
  2. CLOPIDOGREL [Suspect]
     Dosage: 75MG QD OTHER
     Dates: start: 20060913, end: 20061230

REACTIONS (1)
  - PULMONARY ALVEOLAR HAEMORRHAGE [None]
